FAERS Safety Report 5179398-5 (Version None)
Quarter: 2006Q4

REPORT INFORMATION
  Report Type: 
  Country: None (occurrence: None)
  Receive Date: 20061219
  Receipt Date: 20061204
  Transmission Date: 20070319
  Serious: Yes (Other)
  Sender: FDA-Public Use
  Company Number: CH-ROCHE-474001

PATIENT
  Age: 18 Year
  Sex: Female

DRUGS (3)
  1. ROACCUTAN [Suspect]
     Indication: DRUG USE FOR UNKNOWN INDICATION
     Route: 048
     Dates: start: 20030521, end: 20040207
  2. ROACCUTAN [Suspect]
     Route: 048
     Dates: start: 20030303, end: 20030520
  3. CO-AMOXI-MEPHA [Concomitant]
     Indication: STREPTOCOCCAL INFECTION
     Dates: start: 20040915, end: 20040915

REACTIONS (1)
  - DEAFNESS [None]
